FAERS Safety Report 15018569 (Version 1)
Quarter: 2018Q2

REPORT INFORMATION
  Report Type: Spontaneous
  Country: US (occurrence: US)
  Receive Date: 20180615
  Receipt Date: 20180615
  Transmission Date: 20180711
  Serious: No
  Sender: FDA-Public Use
  Company Number: US-009507513-1805USA011265

PATIENT
  Sex: Female

DRUGS (4)
  1. BELSOMRA [Suspect]
     Active Substance: SUVOREXANT
     Indication: INSOMNIA
     Dosage: 20 MG, ONE TABLET DAILY BEFORE BEDTIME (QPM)
     Route: 048
     Dates: start: 20180501
  2. ATIVAN [Concomitant]
     Active Substance: LORAZEPAM
     Dosage: AS NEEDED BUT MUCH LESS FREQUENTLY THAN EVERY DAY
  3. PROZAC [Concomitant]
     Active Substance: FLUOXETINE HYDROCHLORIDE
     Dosage: 40 MG, QD
  4. LAMOTRIGINE. [Concomitant]
     Active Substance: LAMOTRIGINE
     Dosage: 200 MG, QD

REACTIONS (3)
  - Increased appetite [Unknown]
  - Drug effect incomplete [Unknown]
  - Drug dose omission [Unknown]

NARRATIVE: CASE EVENT DATE: 2018
